FAERS Safety Report 23205353 (Version 4)
Quarter: 2025Q1

REPORT INFORMATION
  Report Type: Spontaneous
  Country: US (occurrence: US)
  Receive Date: 20231120
  Receipt Date: 20250128
  Transmission Date: 20250409
  Serious: Yes (Other)
  Sender: PFIZER
  Company Number: US-PFIZER INC-PV202300189645

PATIENT
  Age: 71 Year
  Sex: Female
  Weight: 75.841 kg

DRUGS (4)
  1. IBRANCE [Suspect]
     Active Substance: PALBOCICLIB
     Indication: Breast cancer female
     Route: 048
     Dates: start: 201902
  2. IBRANCE [Suspect]
     Active Substance: PALBOCICLIB
     Dosage: 75 MG, DAILY
     Dates: start: 202205
  3. IBRANCE [Suspect]
     Active Substance: PALBOCICLIB
     Route: 048
  4. LETROZOLE [Concomitant]
     Active Substance: LETROZOLE
     Dates: start: 201902

REACTIONS (12)
  - Neutropenia [Unknown]
  - Thrombocytopenia [Unknown]
  - Platelet disorder [Unknown]
  - Basophil count increased [Unknown]
  - Blood cholesterol increased [Unknown]
  - Blood glucose increased [Unknown]
  - Blood triglycerides increased [Unknown]
  - Mean cell volume increased [Unknown]
  - Mean platelet volume increased [Unknown]
  - Protein total decreased [Unknown]
  - Red blood cell count decreased [Unknown]
  - White blood cell count decreased [Unknown]

NARRATIVE: CASE EVENT DATE: 20240514
